FAERS Safety Report 5249397-3 (Version None)
Quarter: 2007Q1

REPORT INFORMATION
  Report Type: 
  Country: None (occurrence: None)
  Receive Date: 20070228
  Receipt Date: 20061002
  Transmission Date: 20070707
  Serious: No
  Sender: FDA-Public Use
  Company Number: US-GLAXOSMITHKLINE-A0622112A

PATIENT
  Age: 50 Year
  Sex: Female

DRUGS (4)
  1. VALTREX [Suspect]
     Dosage: 500MG PER DAY
     Route: 048
     Dates: start: 20060916
  2. MULTI-VITAMIN [Concomitant]
  3. LOPRESSOR [Concomitant]
  4. GREEN TEA [Concomitant]
     Route: 048

REACTIONS (4)
  - DIARRHOEA [None]
  - DRY MOUTH [None]
  - HEADACHE [None]
  - TREMOR [None]
